FAERS Safety Report 21614423 (Version 1)
Quarter: 2022Q4

REPORT INFORMATION
  Report Type: Spontaneous
  Country: IT (occurrence: IT)
  Receive Date: 20221118
  Receipt Date: 20221118
  Transmission Date: 20230112
  Serious: Yes (Hospitalization)
  Sender: FDA-Public Use
  Company Number: IT-MYLANLABS-2022M1128464

PATIENT
  Age: 35 Year
  Sex: Female

DRUGS (6)
  1. URSODIOL [Suspect]
     Active Substance: URSODIOL
     Indication: Cholestasis
     Dosage: 1500 MILLIGRAM, QD
     Route: 065
  2. PROGESTERONE [Suspect]
     Active Substance: PROGESTERONE
     Indication: Hormone therapy
     Dosage: TILL 12 WEEKS OF GESTATION
     Route: 065
  3. PROGESTERONE [Suspect]
     Active Substance: PROGESTERONE
     Indication: Supplementation therapy
  4. ESTROGEN NOS [Suspect]
     Active Substance: ESTROGENS
     Indication: Hormone therapy
     Dosage: TILL 12 WEEKS OF GESTATION
     Route: 065
  5. ESTROGEN NOS [Suspect]
     Active Substance: ESTROGENS
     Indication: Supplementation therapy
  6. BETAMETHASONE [Suspect]
     Active Substance: BETAMETHASONE
     Indication: Maternal therapy to enhance foetal lung maturity
     Dosage: UNK
     Route: 065

REACTIONS (2)
  - Drug ineffective [Unknown]
  - Maternal exposure during pregnancy [Unknown]
